FAERS Safety Report 18100480 (Version 1)
Quarter: 2020Q3

REPORT INFORMATION
  Report Type: Spontaneous
  Country: DE (occurrence: DE)
  Receive Date: 20200731
  Receipt Date: 20200731
  Transmission Date: 20201103
  Serious: Yes (Congenital Anomaly)
  Sender: FDA-Public Use
  Company Number: DE-ALLERGAN-2028130US

PATIENT
  Sex: Female
  Weight: 3.94 kg

DRUGS (8)
  1. STELARA [Suspect]
     Active Substance: USTEKINUMAB
     Indication: EXPOSURE DURING PREGNANCY
     Dosage: 90 MG
     Route: 064
     Dates: start: 20190708, end: 20200413
  2. VITAMIN D3 [Concomitant]
     Active Substance: CHOLECALCIFEROL
     Indication: EXPOSURE DURING PREGNANCY
     Dosage: 1000 [IE/D ]
     Route: 064
     Dates: start: 20190708, end: 20200413
  3. CEFURAX [Concomitant]
     Active Substance: CEFUROXIME AXETIL
     Indication: EXPOSURE DURING PREGNANCY
     Dosage: 250 [MG/D ]
     Route: 064
  4. PROTOPIC [Concomitant]
     Active Substance: TACROLIMUS
     Indication: EXPOSURE DURING PREGNANCY
     Route: 064
  5. VAXIGRIPTETRA [Concomitant]
     Active Substance: INFLUENZA VIRUS VACCINE QUADRIVALENT TYPE A+B
     Indication: EXPOSURE DURING PREGNANCY
     Route: 064
     Dates: start: 20191017, end: 20191017
  6. PARACETAMOL [Concomitant]
     Active Substance: ACETAMINOPHEN
     Indication: EXPOSURE DURING PREGNANCY
     Dosage: 500 MG, QD
     Route: 064
  7. MESALAZINE UNK [Suspect]
     Active Substance: MESALAMINE
     Indication: EXPOSURE DURING PREGNANCY
     Dosage: 4000 [MG/D ]
     Route: 064
     Dates: start: 20190708, end: 20200413
  8. L?THYROXIN [Concomitant]
     Active Substance: LEVOTHYROXINE SODIUM
     Indication: EXPOSURE DURING PREGNANCY
     Dosage: 100 ?G, QD
     Route: 064
     Dates: start: 20190708, end: 20200413

REACTIONS (2)
  - Kidney duplex [Unknown]
  - Foetal exposure during pregnancy [Unknown]
